FAERS Safety Report 6648695-6 (Version None)
Quarter: 2010Q1

REPORT INFORMATION
  Report Type: 
  Country: None (occurrence: None)
  Receive Date: 20100324
  Receipt Date: 20100312
  Transmission Date: 20100710
  Serious: Yes (Other)
  Sender: FDA-Public Use
  Company Number: JP-PFIZER INC-2010034029

PATIENT
  Age: 85 Year
  Sex: Male

DRUGS (2)
  1. DALACIN [Suspect]
     Indication: PNEUMONIA ASPIRATION
     Route: 042
     Dates: start: 20100201
  2. AZACTAM [Suspect]
     Dates: start: 20100201

REACTIONS (1)
  - HYPOTHERMIA [None]
